FAERS Safety Report 7775456-7 (Version None)
Quarter: 2011Q3

REPORT INFORMATION
  Report Type: 
  Country: None (occurrence: None)
  Receive Date: 20110923
  Receipt Date: 20110921
  Transmission Date: 20111222
  Serious: Yes (Hospitalization)
  Sender: FDA-Public Use
  Company Number: PHHY2011NO83765

PATIENT
  Sex: Female

DRUGS (7)
  1. ZOLEDRONOC ACID [Suspect]
     Indication: OSTEOPOROSIS
     Dosage: 5 MG, ONCE A YEAR
     Route: 042
     Dates: start: 20080501
  2. ZOLEDRONOC ACID [Suspect]
     Dosage: 5 MG,
     Route: 042
  3. DESOGESTREL AND ETHINYL ESTRADIOL [Concomitant]
     Dosage: UNK UKN, UNK
  4. TRIOBE [Concomitant]
     Dosage: UNK UKN, UNK
  5. NYCOPLUS CALCIGRAN [Concomitant]
     Dosage: UNK UKN, UNK
  6. LEVOTHYROXINE SODIUM [Concomitant]
     Dosage: UNK UKN, UNK
  7. ZOLEDRONOC ACID [Suspect]
     Dosage: 5 MG,
     Route: 042
     Dates: start: 20100521

REACTIONS (2)
  - HEADACHE [None]
  - MALIGNANT HYPERTENSION [None]
